FAERS Safety Report 24878632 (Version 1)
Quarter: 2025Q1

REPORT INFORMATION
  Report Type: Spontaneous
  Country: JP (occurrence: JP)
  Receive Date: 20250123
  Receipt Date: 20250123
  Transmission Date: 20250409
  Serious: Yes (Life-Threatening)
  Sender: PFIZER
  Company Number: JP-PFIZER INC-PV202500008960

PATIENT
  Age: 75 Year
  Sex: Male
  Weight: 63.2 kg

DRUGS (12)
  1. METHOTREXATE SODIUM [Suspect]
     Active Substance: METHOTREXATE SODIUM
     Indication: Diffuse large B-cell lymphoma
     Dosage: 3300 MG, 1X/DAY
     Route: 041
     Dates: start: 20250107, end: 20250107
  2. MEYLON [Concomitant]
     Active Substance: SODIUM BICARBONATE
  3. SOLDEM 3A [Concomitant]
     Active Substance: CARBOHYDRATES\POTASSIUM CHLORIDE\SODIUM CHLORIDE\SODIUM LACTATE
  4. GRANISETRON [Concomitant]
     Active Substance: GRANISETRON
     Route: 042
  5. DEXTROSE [Concomitant]
     Active Substance: DEXTROSE MONOHYDRATE
  6. ROXATIDINE ACETATE HYDROCHLORIDE [Concomitant]
     Active Substance: ROXATIDINE ACETATE HYDROCHLORIDE
  7. TEPRENONE [Concomitant]
     Active Substance: TEPRENONE
  8. FEBUXOSTAT [Concomitant]
     Active Substance: FEBUXOSTAT
  9. ZOVIRAX [Concomitant]
     Active Substance: ACYCLOVIR
  10. TELMISARTAN [Concomitant]
     Active Substance: TELMISARTAN
  11. AMLODIPINE BESYLATE [Concomitant]
     Active Substance: AMLODIPINE BESYLATE
  12. MAGNESIUM OXIDE [Concomitant]
     Active Substance: MAGNESIUM OXIDE

REACTIONS (1)
  - Anaphylactic reaction [Recovered/Resolved]

NARRATIVE: CASE EVENT DATE: 20250107
